FAERS Safety Report 4364461-9 (Version None)
Quarter: 2004Q2

REPORT INFORMATION
  Report Type: 
  Country: None (occurrence: None)
  Receive Date: 20040525
  Receipt Date: 20040504
  Transmission Date: 20050107
  Serious: Yes (Other)
  Sender: FDA-Public Use
  Company Number: GB-GLAXOSMITHKLINE-B0332158A

PATIENT
  Age: 50 Year
  Sex: Male

DRUGS (3)
  1. LAMICTAL [Suspect]
     Route: 065
  2. CARBAMAZEPINE [Concomitant]
  3. CLONAZEPAM [Concomitant]

REACTIONS (1)
  - INTESTINAL OBSTRUCTION [None]
